FAERS Safety Report 6901401-X (Version None)
Quarter: 2010Q3

REPORT INFORMATION
  Report Type: 
  Country: None (occurrence: None)
  Receive Date: 20100803
  Receipt Date: 20080128
  Transmission Date: 20110219
  Serious: No
  Sender: FDA-Public Use
  Company Number: US-PFIZER INC-2008006729

PATIENT
  Sex: Female
  Weight: 76.818 kg

DRUGS (4)
  1. LYRICA [Suspect]
     Indication: DIABETIC NEUROPATHY
     Dates: start: 20080105
  2. LYRICA [Suspect]
     Indication: BURNING SENSATION
  3. METFORMIN HCL [Concomitant]
     Indication: DIABETES MELLITUS
  4. ENALAPRIL [Concomitant]
     Indication: HYPERTENSION

REACTIONS (1)
  - DRUG INEFFECTIVE [None]
